FAERS Safety Report 6044882-9 (Version None)
Quarter: 2009Q1

REPORT INFORMATION
  Report Type: 
  Country: None (occurrence: None)
  Receive Date: 20090121
  Receipt Date: 20090116
  Transmission Date: 20090719
  Serious: Yes (Life-Threatening)
  Sender: FDA-Public Use
  Company Number: US-ASTRAZENECA-2008UW27111

PATIENT
  Age: 52 Year
  Sex: Male
  Weight: 110.2 kg

DRUGS (2)
  1. SYMBICORT [Suspect]
     Indication: ASTHMA
     Dosage: 80/4.5 UG 2 INHALATIONS BID
     Route: 055
     Dates: start: 20081104, end: 20081110
  2. OMNARIS [Concomitant]
     Indication: ASTHMA
     Route: 055
     Dates: start: 20081104, end: 20081110

REACTIONS (3)
  - LOCAL SWELLING [None]
  - PHARYNGEAL OEDEMA [None]
  - SWELLING FACE [None]
